FAERS Safety Report 4541931-1 (Version None)
Quarter: 2004Q4

REPORT INFORMATION
  Report Type: 
  Country: None (occurrence: None)
  Receive Date: 20041227
  Receipt Date: 20041217
  Transmission Date: 20050328
  Serious: Yes (Life-Threatening)
  Sender: FDA-Public Use
  Company Number: 211212

PATIENT
  Age: 82 Year
  Sex: Female

DRUGS (10)
  1. MABTHERA (RITUXIMAB) [Suspect]
     Indication: DIFFUSE LARGE B-CELL LYMPHOMA
     Dosage: SEE IMAGE
     Route: 042
     Dates: start: 20040705, end: 20040726
  2. MABTHERA (RITUXIMAB) [Suspect]
     Indication: DIFFUSE LARGE B-CELL LYMPHOMA
     Dosage: SEE IMAGE
     Route: 042
     Dates: start: 20040726, end: 20040726
  3. PIRARUBICIN (PIRARUBICIN) [Suspect]
     Dosage: SEE IMAGE
     Route: 042
     Dates: start: 20040707, end: 20040707
  4. PIRARUBICIN (PIRARUBICIN) [Suspect]
     Dosage: SEE IMAGE
     Route: 042
     Dates: start: 20040728, end: 20040728
  5. CYCLOPHOSPHAMIDE [Suspect]
     Dosage: SEE IMAGE
     Route: 042
     Dates: start: 20040707, end: 20040707
  6. CYCLOPHOSPHAMIDE [Suspect]
     Dosage: SEE IMAGE
     Route: 042
     Dates: start: 20040728, end: 20040728
  7. DOXORUBICIN (DOXORUBICN HYDROCHLORIDE, DOXORUBICIN) [Suspect]
     Dosage: SEE IMAGE
     Route: 042
     Dates: start: 20040707, end: 20040707
  8. DOXORUBICIN (DOXORUBICN HYDROCHLORIDE, DOXORUBICIN) [Suspect]
     Dosage: SEE IMAGE
     Route: 042
     Dates: start: 20040728, end: 20040728
  9. PREDNISONE [Suspect]
     Dosage: SEE IMAGE
     Route: 042
     Dates: start: 20040707, end: 20040707
  10. PREDNISONE [Suspect]
     Dosage: SEE IMAGE
     Route: 042
     Dates: start: 20040728, end: 20040801

REACTIONS (2)
  - PNEUMOCYSTIS CARINII INFECTION [None]
  - PULMONARY OEDEMA [None]
